FAERS Safety Report 11428045 (Version 1)
Quarter: 2015Q3

REPORT INFORMATION
  Report Type: Spontaneous
  Country: US (occurrence: None)
  Receive Date: 20150827
  Receipt Date: 20150827
  Transmission Date: 20151125
  Serious: Yes (Other)
  Sender: FDA-Public Use
  Company Number: None

PATIENT
  Age: 63 Year
  Sex: Female
  Weight: 54.43 kg

DRUGS (10)
  1. RECLAST [Suspect]
     Active Substance: ZOLEDRONIC ACID
     Indication: OSTEOPOROSIS
     Dosage: 1 MG. ?1 INJECTION?ONCE A YEAR?INJECTION
     Dates: start: 20150805, end: 20150805
  2. VITAMIN D [Concomitant]
     Active Substance: CHOLECALCIFEROL
  3. DHEA [Concomitant]
     Active Substance: PRASTERONE
  4. CENTRUM WOMEN^S OVER 50 [Concomitant]
  5. XANAX [Concomitant]
     Active Substance: ALPRAZOLAM
  6. TRIAVIL [Concomitant]
     Active Substance: AMITRIPTYLINE HYDROCHLORIDE\PERPHENAZINE
  7. VITAMIN C [Concomitant]
     Active Substance: ASCORBIC ACID
  8. BENADRYL [Concomitant]
     Active Substance: DIPHENHYDRAMINE HYDROCHLORIDE
  9. CALCIUM [Concomitant]
     Active Substance: CALCIUM
  10. MELATONIN [Concomitant]
     Active Substance: MELATONIN

REACTIONS (10)
  - Chills [None]
  - Dizziness [None]
  - Asthenia [None]
  - Tremor [None]
  - Arthralgia [None]
  - Flushing [None]
  - Erythema [None]
  - Headache [None]
  - Paraesthesia [None]
  - Fatigue [None]

NARRATIVE: CASE EVENT DATE: 20150806
